FAERS Safety Report 4989471-X (Version None)
Quarter: 2006Q2

REPORT INFORMATION
  Report Type: 
  Country: None (occurrence: None)
  Receive Date: 20060502
  Receipt Date: 20050823
  Transmission Date: 20061013
  Serious: Yes (Other)
  Sender: FDA-Public Use
  Company Number: US-MERCK-0508USA03919

PATIENT
  Age: 63 Year
  Sex: Female
  Weight: 79 kg

DRUGS (15)
  1. VIOXX [Suspect]
     Indication: ARTHRITIS
     Route: 048
     Dates: start: 20010320, end: 20040701
  2. VIOXX [Suspect]
     Route: 048
     Dates: start: 20020523, end: 20040701
  3. VIOXX [Suspect]
     Indication: FIBROMYALGIA
     Route: 048
     Dates: start: 20010320, end: 20040701
  4. VIOXX [Suspect]
     Route: 048
     Dates: start: 20020523, end: 20040701
  5. PROTONIX [Concomitant]
     Indication: ABDOMINAL PAIN UPPER
     Route: 065
  6. FAMOTIDINE [Concomitant]
     Indication: GASTROOESOPHAGEAL REFLUX DISEASE
     Route: 065
  7. ALBUTEROL [Concomitant]
     Indication: ASTHMA
     Route: 065
  8. QVAR 40 [Concomitant]
     Indication: ASTHMA
     Route: 065
  9. HYDROCODONE BITARTRATE [Concomitant]
     Indication: PAIN
     Route: 065
  10. AMOXICILLIN [Concomitant]
     Indication: BRONCHITIS
     Route: 065
  11. CIPROFLOXACIN HCL [Concomitant]
     Indication: BRONCHITIS
     Route: 065
  12. CEPHALEXIN [Concomitant]
     Indication: CYSTITIS
     Route: 065
  13. IMIPRAMINE HYDROCHLORIDE [Concomitant]
     Indication: CYST
     Route: 065
  14. PROZAC [Concomitant]
     Route: 065
  15. CHONDROITIN [Concomitant]
     Route: 065

REACTIONS (10)
  - ARTHRALGIA [None]
  - ASTHMA [None]
  - BLOOD CHOLESTEROL INCREASED [None]
  - CHRONIC FATIGUE SYNDROME [None]
  - DEPRESSION [None]
  - HYPERTENSION [None]
  - MASS [None]
  - OPTIC ISCHAEMIC NEUROPATHY [None]
  - OVERDOSE [None]
  - STOMACH DISCOMFORT [None]
